FAERS Safety Report 11695856 (Version 1)
Quarter: 2015Q4

REPORT INFORMATION
  Report Type: Spontaneous
  Country: US (occurrence: None)
  Receive Date: 20151103
  Receipt Date: 20151103
  Transmission Date: 20160304
  Serious: Yes (Other)
  Sender: FDA-Public Use
  Company Number: None

PATIENT
  Age: 38 Year
  Sex: Male
  Weight: 83.92 kg

DRUGS (4)
  1. PREZISTA [Concomitant]
     Active Substance: DARUNAVIR ETHANOLATE
  2. NORVIR [Concomitant]
     Active Substance: RITONAVIR
  3. LORAZEPAM 1MG 2X A DAY MYLAN [Suspect]
     Active Substance: LORAZEPAM
     Indication: ANXIETY
     Route: 048
     Dates: start: 20150801, end: 20151027
  4. TRUVADA [Concomitant]
     Active Substance: EMTRICITABINE\TENOFOVIR DISOPROXIL FUMARATE

REACTIONS (16)
  - Extrapyramidal disorder [None]
  - Hallucination [None]
  - Depression [None]
  - Anxiety [None]
  - Aggression [None]
  - Confusional state [None]
  - Paradoxical drug reaction [None]
  - Sleep disorder [None]
  - Libido increased [None]
  - Suicidal ideation [None]
  - Agitation [None]
  - Memory impairment [None]
  - Disorientation [None]
  - Anger [None]
  - Suicide attempt [None]
  - Hostility [None]

NARRATIVE: CASE EVENT DATE: 20151027
